FAERS Safety Report 22271579 (Version 1)
Quarter: 2023Q2

REPORT INFORMATION
  Report Type: Spontaneous
  Country: HU (occurrence: HU)
  Receive Date: 20230502
  Receipt Date: 20230502
  Transmission Date: 20230721
  Serious: Yes (Death)
  Sender: FDA-Public Use
  Company Number: None

PATIENT
  Age: 70 Year
  Sex: Female
  Weight: 45 kg

DRUGS (12)
  1. CAPECITABINE [Suspect]
     Active Substance: CAPECITABINE
     Indication: Gastric cancer
     Dosage: STRENGTH: 500 MG, 1000 MG IN THE MORNING, 1500 MG IN THE EVENING
     Dates: start: 20230225, end: 202303
  2. OXALIPLATIN [Suspect]
     Active Substance: OXALIPLATIN
     Indication: Gastric cancer
     Dosage: STRENGTH: 5, AN INTRAVENOUS INFUSION IN 500 ML DEXTROSE SOLUTION
     Dates: start: 20230224, end: 20230224
  3. FERRLECIT [Concomitant]
     Active Substance: SODIUM FERRIC GLUCONATE COMPLEX
     Indication: Iron deficiency
     Dates: start: 202301, end: 202302
  4. FILGRASTIM [Concomitant]
     Active Substance: FILGRASTIM
     Indication: Prophylaxis
     Dates: start: 202301
  5. RAMIPRIL [Concomitant]
     Active Substance: RAMIPRIL
     Indication: Hypertension
  6. BENFOTIAMINE [Concomitant]
     Active Substance: BENFOTIAMINE
     Indication: Prophylaxis
     Dates: start: 202302, end: 2023
  7. METFORMIN HYDROCHLORIDE [Concomitant]
     Active Substance: METFORMIN HYDROCHLORIDE
     Indication: Diabetes mellitus
  8. GLUTAMINE [Concomitant]
     Active Substance: GLUTAMINE
     Indication: Prophylaxis
     Dates: start: 202301
  9. ERYTHROPOIETIN [Concomitant]
     Active Substance: ERYTHROPOIETIN
     Indication: Anaemia
     Dates: start: 202301
  10. BISOPROLOL FUMARATE [Concomitant]
     Active Substance: BISOPROLOL FUMARATE
  11. ONDANSETRON [Concomitant]
     Active Substance: ONDANSETRON
     Indication: Nausea
     Dates: start: 202302
  12. IMODIUM [Concomitant]
     Active Substance: LOPERAMIDE HYDROCHLORIDE
     Indication: Diarrhoea
     Dates: start: 202302

REACTIONS (7)
  - Nausea [Fatal]
  - Vomiting [Fatal]
  - General physical health deterioration [Fatal]
  - Decreased appetite [Fatal]
  - Asthenia [Fatal]
  - Dysphagia [Fatal]
  - Diarrhoea [Fatal]

NARRATIVE: CASE EVENT DATE: 20230224
